FAERS Safety Report 6822526-3 (Version None)
Quarter: 2010Q3

REPORT INFORMATION
  Report Type: 
  Country: None (occurrence: None)
  Receive Date: 20100707
  Receipt Date: 20100707
  Transmission Date: 20110219
  Serious: Yes (Other)
  Sender: FDA-Public Use
  Company Number: None

PATIENT
  Age: 44 Year
  Sex: Female
  Weight: 70.7611 kg

DRUGS (2)
  1. CYMBALTA [Suspect]
     Indication: GASTROINTESTINAL DISORDER
     Dosage: 1 DAILY PO
     Route: 048
     Dates: start: 20050315, end: 20100706
  2. CYMBALTA [Suspect]
     Indication: IRRITABLE BOWEL SYNDROME
     Dosage: 1 DAILY PO
     Route: 048
     Dates: start: 20050315, end: 20100706

REACTIONS (3)
  - INFLUENZA LIKE ILLNESS [None]
  - IRRITABLE BOWEL SYNDROME [None]
  - WITHDRAWAL SYNDROME [None]
